FAERS Safety Report 21863697 (Version 2)
Quarter: 2023Q1

REPORT INFORMATION
  Report Type: Spontaneous
  Country: US (occurrence: US)
  Receive Date: 20230116
  Receipt Date: 20230313
  Transmission Date: 20230417
  Serious: No
  Sender: FDA-Public Use
  Company Number: US-drreddys-SPO/USA/23/0159519

PATIENT
  Age: 22 Year
  Sex: Male

DRUGS (3)
  1. DOXORUBICIN HYDROCHLORIDE [Suspect]
     Active Substance: DOXORUBICIN HYDROCHLORIDE
     Indication: Hepatic sarcoma
     Dosage: 37.5 MG/M^2 PER DOSE INTRAVENOUSLY ON DAYS 1 TO 2 AT 3-WEEK INTERVALS FOR 4 CYCLES
     Route: 042
  2. IFOSFAMIDE [Suspect]
     Active Substance: IFOSFAMIDE
     Indication: Hepatic sarcoma
     Dosage: 2.5G/M^2 PER DOSE INTRAVENOUSLY ON DAYS 1 TO 3 AT 3-WEEK INTERVALS FOR 4 CYCLES
     Route: 042
  3. MESNA [Concomitant]
     Active Substance: MESNA
     Indication: Product used for unknown indication
     Dosage: AT 3-WEEK INTERVALS FOR 4 CYCLES

REACTIONS (1)
  - Malaise [Unknown]
